FAERS Safety Report 10383298 (Version 1)
Quarter: 2014Q3

REPORT INFORMATION
  Report Type: Spontaneous
  Country: GB (occurrence: GB)
  Receive Date: 20140814
  Receipt Date: 20140814
  Transmission Date: 20150326
  Serious: Yes (Hospitalization)
  Sender: FDA-Public Use
  Company Number: GB-ROCHE-1447400

PATIENT
  Age: 62 Year
  Sex: Male

DRUGS (7)
  1. ATORVASTATIN [Concomitant]
     Active Substance: ATORVASTATIN
     Route: 065
  2. FLUOXETINE [Concomitant]
     Active Substance: FLUOXETINE\FLUOXETINE HYDROCHLORIDE
     Route: 065
  3. ORLISTAT [Suspect]
     Active Substance: ORLISTAT
     Indication: OBESITY
     Route: 065
     Dates: start: 20130904, end: 20140723
  4. COCODAMOL [Concomitant]
     Active Substance: ACETAMINOPHEN\CODEINE PHOSPHATE
     Route: 065
  5. FUROSEMIDE. [Concomitant]
     Active Substance: FUROSEMIDE
     Route: 065
  6. NICOTINELL [Concomitant]
     Active Substance: NICOTINE
     Route: 065
  7. METFORMIN [Concomitant]
     Active Substance: METFORMIN HYDROCHLORIDE
     Route: 065

REACTIONS (3)
  - Nephropathy [Not Recovered/Not Resolved]
  - Renal failure acute [Unknown]
  - Renal tubular necrosis [Unknown]

NARRATIVE: CASE EVENT DATE: 20140721
